FAERS Safety Report 8374373-1 (Version None)
Quarter: 2012Q2

REPORT INFORMATION
  Report Type: 
  Country: None (occurrence: None)
  Receive Date: 20120521
  Receipt Date: 20120516
  Transmission Date: 20120825
  Serious: Yes (Hospitalization)
  Sender: FDA-Public Use
  Company Number: US-BAYER-201028464NA

PATIENT
  Age: 37 Year
  Sex: Female
  Weight: 70 kg

DRUGS (6)
  1. FLUOXETINE [Concomitant]
     Dosage: UNK
     Dates: start: 20061211, end: 20100314
  2. YAZ [Suspect]
     Indication: PREMENSTRUAL SYNDROME
     Route: 048
     Dates: start: 20070101, end: 20100615
  3. YAZ [Suspect]
     Indication: MENSTRUATION IRREGULAR
  4. TOPIRAMATE [Concomitant]
     Dosage: UNK
     Dates: start: 20090401, end: 20100314
  5. VITAMIN TAB [Concomitant]
     Dosage: UNK
     Dates: start: 20100314
  6. LUNESTA [Concomitant]
     Dosage: UNK
     Dates: start: 20080519, end: 20100314

REACTIONS (7)
  - PULMONARY EMBOLISM [None]
  - EMOTIONAL DISTRESS [None]
  - BACK PAIN [None]
  - DYSPNOEA [None]
  - INJURY [None]
  - ANXIETY [None]
  - PAIN [None]
